FAERS Safety Report 17429076 (Version 1)
Quarter: 2020Q1

REPORT INFORMATION
  Report Type: Spontaneous
  Country: CA (occurrence: CA)
  Receive Date: 20200218
  Receipt Date: 20200218
  Transmission Date: 20200409
  Serious: Yes (Other)
  Sender: FDA-Public Use
  Company Number: CA-PFIZER INC-2020068901

PATIENT
  Sex: Female

DRUGS (3)
  1. AMOXICILLIN. [Suspect]
     Active Substance: AMOXICILLIN
  2. MEZAVANT [Concomitant]
     Active Substance: MESALAMINE
  3. SULFASALAZINE. [Suspect]
     Active Substance: SULFASALAZINE

REACTIONS (7)
  - Pain [Unknown]
  - Haematochezia [Unknown]
  - Frequent bowel movements [Unknown]
  - Hypersensitivity [Unknown]
  - Abdominal distension [Unknown]
  - Mucous stools [Unknown]
  - Nausea [Unknown]
